FAERS Safety Report 24302620 (Version 1)
Quarter: 2024Q3

REPORT INFORMATION
  Report Type: Spontaneous
  Country: CA (occurrence: CA)
  Receive Date: 20240910
  Receipt Date: 20240910
  Transmission Date: 20241017
  Serious: Yes (Other)
  Sender: PFIZER
  Company Number: CA-BRISTOL-MYERS SQUIBB COMPANY-2024-122278

PATIENT
  Age: 66 Year
  Sex: Female

DRUGS (10)
  1. APIXABAN [Suspect]
     Active Substance: APIXABAN
     Dosage: UNK
  2. HYDROMORPHONE HYDROCHLORIDE [Suspect]
     Active Substance: HYDROMORPHONE HYDROCHLORIDE
     Dosage: UNK
  3. ACETAMINOPHEN [Suspect]
     Active Substance: ACETAMINOPHEN
     Dosage: UNK
  4. CIPROFLOXACIN [Suspect]
     Active Substance: CIPROFLOXACIN
     Dosage: UNK
  5. FERROUS FUMARATE [Suspect]
     Active Substance: FERROUS FUMARATE
     Dosage: UNK
  6. FOLIC ACID [Suspect]
     Active Substance: FOLIC ACID
     Dosage: UNK
  7. MAGNESIUM GLUCONATE [Suspect]
     Active Substance: MAGNESIUM GLUCONATE
     Dosage: UNK
  8. MINERALS\VITAMINS [Suspect]
     Active Substance: MINERALS\VITAMINS
     Dosage: UNK
  9. PROCHLORPERAZINE [Suspect]
     Active Substance: PROCHLORPERAZINE
     Dosage: UNK
  10. MINERALS NOS [Suspect]
     Active Substance: MINERALS

REACTIONS (1)
  - Febrile neutropenia [Unknown]
